FAERS Safety Report 13304893 (Version 1)
Quarter: 2017Q1

REPORT INFORMATION
  Report Type: Spontaneous
  Country: US (occurrence: US)
  Receive Date: 20170307
  Receipt Date: 20170307
  Transmission Date: 20170428
  Serious: Yes (Other)
  Sender: FDA-Public Use
  Company Number: None

PATIENT
  Age: 58 Year
  Sex: Male
  Weight: 123.7 kg

DRUGS (1)
  1. CEFUROXIME AXETIL 500 MG TAB [Suspect]
     Active Substance: CEFUROXIME AXETIL
     Indication: PNEUMONIA
     Dosage: ?          QUANTITY:1 TABLET(S);?
     Route: 048
     Dates: start: 20170205, end: 20170211

REACTIONS (7)
  - Tremor [None]
  - Restlessness [None]
  - Fatigue [None]
  - Dizziness [None]
  - Heart rate increased [None]
  - Hypersensitivity [None]
  - Dry mouth [None]

NARRATIVE: CASE EVENT DATE: 20170211
